FAERS Safety Report 4777975-4 (Version None)
Quarter: 2005Q3

REPORT INFORMATION
  Report Type: 
  Country: None (occurrence: None)
  Receive Date: 20050921
  Receipt Date: 20050908
  Transmission Date: 20060218
  Serious: Yes (Disabling)
  Sender: FDA-Public Use
  Company Number: 2003143010GB

PATIENT
  Age: 65 Year
  Sex: Female

DRUGS (6)
  1. DOXORUBICIN HYDROCHLORIDE [Suspect]
     Indication: LYMPHOMA
     Dosage: 73 MG (73 MG, CYCLIC, EVERY 21 DAYS), INTRAVENOUS
     Route: 042
     Dates: start: 20020912, end: 20021212
  2. MABTHERA (RITUXIMAB) [Suspect]
     Indication: LYMPHOMA
     Dosage: 560  MG( 560 MG, DAILY), INTRAVENOUS
     Route: 042
     Dates: start: 20020912, end: 20021212
  3. CYCLOPHOSPHAMIDE [Suspect]
     Indication: LYMPHOMA
     Dosage: 1090 MG (CYCLIC, EVERY 21 DAYS), INTRAVENOUS
     Route: 042
     Dates: start: 20020912, end: 20021212
  4. VINCRISTINE [Suspect]
     Indication: LYMPHOMA
     Dosage: 1 MG (CYCLIC, EVERY 21 DAYS), INTRAVENOUS
     Route: 042
     Dates: start: 20020912, end: 20021212
  5. PREDNISONE [Suspect]
     Indication: LYMPHOMA
     Dosage: 75 MG (75 MG, DAILY), INTRAVENOUS
     Route: 042
     Dates: start: 20020912, end: 20021212
  6. FILGRASTIM (FILGRASTIM) [Suspect]
     Indication: LYMPHOMA
     Dosage: 30 MILLION UNITS, SUBCUTANEOUS
     Route: 058
     Dates: start: 20020912, end: 20021212

REACTIONS (2)
  - PALMAR-PLANTAR ERYTHRODYSAESTHESIA SYNDROME [None]
  - SKIN EXFOLIATION [None]
